FAERS Safety Report 25283222 (Version 1)
Quarter: 2025Q2

REPORT INFORMATION
  Report Type: Spontaneous
  Country: CN (occurrence: CN)
  Receive Date: 20250508
  Receipt Date: 20250508
  Transmission Date: 20250717
  Serious: Yes (Other)
  Sender: BAYER HEALTHCARE PHARMACEUTICALS INC.
  Company Number: CN-BAYER-2025A062129

PATIENT
  Age: 43 Year
  Sex: Male

DRUGS (2)
  1. ULTRAVIST [Suspect]
     Active Substance: IOPROMIDE
     Indication: Angiocardiogram
     Route: 013
     Dates: start: 20250424, end: 20250424
  2. ULTRAVIST [Suspect]
     Active Substance: IOPROMIDE
     Indication: Acute myocardial infarction

REACTIONS (4)
  - Contrast encephalopathy [Recovering/Resolving]
  - Blood pressure diastolic increased [None]
  - Sleep disorder [Recovering/Resolving]
  - Thinking abnormal [Recovering/Resolving]

NARRATIVE: CASE EVENT DATE: 20250424
